FAERS Safety Report 7078035-2 (Version None)
Quarter: 2010Q4

REPORT INFORMATION
  Report Type: 
  Country: None (occurrence: None)
  Receive Date: 20101102
  Receipt Date: 20101025
  Transmission Date: 20110411
  Serious: Yes (Hospitalization)
  Sender: FDA-Public Use
  Company Number: US-BIOGENIDEC-2010BI037101

PATIENT
  Age: 43 Year
  Sex: Female
  Weight: 124 kg

DRUGS (10)
  1. TYSABRI [Suspect]
     Indication: MULTIPLE SCLEROSIS
     Route: 042
     Dates: start: 20090421, end: 20100817
  2. OXYBUTYNIN [Concomitant]
  3. BACLOFEN [Concomitant]
  4. CLONAZEPAM [Concomitant]
  5. STOOL SOFTENER [Concomitant]
  6. ZOLOFT [Concomitant]
  7. ATIVAN [Concomitant]
  8. ZANTAC [Concomitant]
  9. VITAMIN D [Concomitant]
  10. ALBUTEROL [Concomitant]
     Dosage: DOSE UNIT:90

REACTIONS (1)
  - CEREBROVASCULAR ACCIDENT [None]
